FAERS Safety Report 8601217-2 (Version None)
Quarter: 2012Q3

REPORT INFORMATION
  Report Type: 
  Country: None (occurrence: None)
  Receive Date: 20120817
  Receipt Date: 20120813
  Transmission Date: 20120928
  Serious: Yes (Other)
  Sender: FDA-Public Use
  Company Number: PHHY2012BR070186

PATIENT
  Age: 50 Year
  Sex: Female

DRUGS (3)
  1. VALSARTAN [Concomitant]
     Indication: HYPERTENSION
     Dosage: 80 MG, DAILY
  2. DIOVAN [Suspect]
     Indication: HYPERTENSION
     Dosage: 1 DF, DAILY IN THE MORNING
     Dates: start: 20120501
  3. VALSARTAN [Concomitant]
     Dosage: 80 MG, (2 TABLETS DAILY)

REACTIONS (6)
  - MUSCULOSKELETAL DISCOMFORT [None]
  - MALAISE [None]
  - ASTHENIA [None]
  - DIABETES MELLITUS [None]
  - BLOOD PRESSURE DECREASED [None]
  - HEADACHE [None]
